FAERS Safety Report 24822470 (Version 1)
Quarter: 2025Q1

REPORT INFORMATION
  Report Type: Report from Study
  Country: US (occurrence: US)
  Receive Date: 20250108
  Receipt Date: 20250108
  Transmission Date: 20250409
  Serious: Yes (Hospitalization, Other)
  Sender: ALEXION PHARMACEUTICALS
  Company Number: US-AstraZeneca-CH-00779612A

PATIENT

DRUGS (8)
  1. FARXIGA [Suspect]
     Active Substance: DAPAGLIFLOZIN PROPANEDIOL
     Route: 065
  2. FARXIGA [Suspect]
     Active Substance: DAPAGLIFLOZIN PROPANEDIOL
     Route: 065
  3. FARXIGA [Suspect]
     Active Substance: DAPAGLIFLOZIN PROPANEDIOL
     Route: 065
  4. FARXIGA [Suspect]
     Active Substance: DAPAGLIFLOZIN PROPANEDIOL
     Route: 065
  5. TICAGRELOR [Suspect]
     Active Substance: TICAGRELOR
     Route: 065
  6. TICAGRELOR [Suspect]
     Active Substance: TICAGRELOR
     Route: 065
  7. TICAGRELOR [Suspect]
     Active Substance: TICAGRELOR
     Route: 065
  8. TICAGRELOR [Suspect]
     Active Substance: TICAGRELOR
     Route: 065

REACTIONS (2)
  - Pneumonia [Unknown]
  - Cardiac disorder [Unknown]
